FAERS Safety Report 8781536 (Version 6)
Quarter: 2012Q4

REPORT INFORMATION
  Report Type: 
  Country: US (occurrence: US)
  Receive Date: 20120913
  Receipt Date: 20121130
  Transmission Date: 20130627
  Serious: Yes (Hospitalization, Other)
  Sender: FDA-Public Use
  Company Number: US-009507513-1112USA01473

PATIENT

DRUGS (2)
  1. FOSAMAX [Suspect]
     Indication: OSTEOPOROSIS
     Dosage: 10 mg, qd
     Route: 048
     Dates: start: 1995, end: 2001
  2. FOSAMAX [Suspect]
     Dosage: 70 mg, qw
     Route: 048
     Dates: start: 2002, end: 200701

REACTIONS (53)
  - Femur fracture [Unknown]
  - Open reduction of fracture [Unknown]
  - Blood pressure increased [Recovered/Resolved]
  - Transfusion [Unknown]
  - Renal failure [Recovering/Resolving]
  - Enterococcal infection [Unknown]
  - Blindness unilateral [Unknown]
  - Breast cancer [Unknown]
  - Fracture nonunion [Unknown]
  - Cataract operation [Unknown]
  - Cholecystectomy [Unknown]
  - Intramedullary rod insertion [Unknown]
  - Cerebrovascular accident [Unknown]
  - Knee arthroplasty [Unknown]
  - Mastectomy [Unknown]
  - Muscle flap operation [Unknown]
  - Surgery [Unknown]
  - Device failure [Unknown]
  - Knee arthroplasty [Unknown]
  - Diarrhoea [Recovered/Resolved]
  - Constipation [Recovered/Resolved]
  - Hypertension [Unknown]
  - Hypercholesterolaemia [Unknown]
  - Diabetes mellitus [Unknown]
  - Arthritis [Unknown]
  - Glaucoma [Unknown]
  - Hiatus hernia [Unknown]
  - Osteoarthritis [Unknown]
  - Cataract [Unknown]
  - Upper limb fracture [Unknown]
  - Hysterectomy [Unknown]
  - Lower limb fracture [Unknown]
  - Osteopenia [Unknown]
  - Fibula fracture [Unknown]
  - Increased tendency to bruise [Unknown]
  - Device related infection [Unknown]
  - Pain [Not Recovered/Not Resolved]
  - Anaemia [Not Recovered/Not Resolved]
  - Cardiac disorder [Unknown]
  - Cardiac murmur [Unknown]
  - Peripheral vascular disorder [Unknown]
  - Post procedural constipation [Unknown]
  - Post procedural diarrhoea [Unknown]
  - Deformity [Unknown]
  - Wound drainage [Unknown]
  - Debridement [Unknown]
  - Oedema peripheral [Unknown]
  - Gastrooesophageal reflux disease [Unknown]
  - Drug ineffective [Unknown]
  - Open reduction of fracture [Unknown]
  - Transfusion [Unknown]
  - Debridement [Unknown]
  - Platelet count increased [Unknown]
